FAERS Safety Report 5037801-5 (Version None)
Quarter: 2006Q2

REPORT INFORMATION
  Report Type: 
  Country: None (occurrence: None)
  Receive Date: 20060601
  Receipt Date: 20060209
  Transmission Date: 20061013
  Serious: No
  Sender: FDA-Public Use
  Company Number: 2006PV008447

PATIENT
  Age: 29 Year
  Sex: Female
  Weight: 119.7496 kg

DRUGS (3)
  1. BYETTA [Suspect]
     Indication: DIABETES MELLITUS
     Dosage: SEE IMAGE
     Route: 058
     Dates: start: 20051001
  2. AVANDIA [Concomitant]
  3. HIGH BLOOD PRESSURE MED [Concomitant]

REACTIONS (1)
  - INJECTION SITE HAEMORRHAGE [None]
